FAERS Safety Report 7690924-4 (Version None)
Quarter: 2011Q3

REPORT INFORMATION
  Report Type: 
  Country: None (occurrence: None)
  Receive Date: 20110818
  Receipt Date: 20110812
  Transmission Date: 20111222
  Serious: Yes (Other)
  Sender: FDA-Public Use
  Company Number: BR-SANOFI-AVENTIS-2011SA051971

PATIENT
  Sex: Female

DRUGS (5)
  1. LANTUS [Suspect]
     Route: 058
  2. LANTUS [Suspect]
     Route: 058
  3. LEVOTHYROXINE SODIUM [Concomitant]
     Dosage: ACCORDING TO GLYCEMIA
     Route: 048
  4. SOLOSTAR [Suspect]
  5. HUMALOG [Concomitant]
     Dosage: ACCORDING TO GLYCEMIA
     Route: 058

REACTIONS (2)
  - BREAST CANCER IN SITU [None]
  - HYPERGLYCAEMIA [None]
